FAERS Safety Report 8451348-5 (Version None)
Quarter: 2012Q2

REPORT INFORMATION
  Report Type: 
  Country: None (occurrence: None)
  Receive Date: 20120620
  Receipt Date: 20120224
  Transmission Date: 20120825
  Serious: No
  Sender: FDA-Public Use
  Company Number: US-VERTEX PHARMACEUTICALS INC.-AE-2012-002725

PATIENT
  Sex: Male
  Weight: 68.1 kg

DRUGS (12)
  1. RIBAVIRIN [Concomitant]
     Indication: HEPATITIS C
     Route: 048
     Dates: start: 20120223
  2. OMEPRAZOLE [Concomitant]
     Indication: GASTROOESOPHAGEAL REFLUX DISEASE
     Route: 048
  3. LORATADINE [Concomitant]
     Indication: HYPERSENSITIVITY
     Route: 048
  4. INVEGA [Concomitant]
     Indication: SCHIZOPHRENIA
     Route: 048
  5. XANAX [Concomitant]
     Route: 048
  6. PHENYTOIN SODIUM XR [Concomitant]
     Indication: CONVULSION
  7. ZETIA [Concomitant]
     Indication: BLOOD CHOLESTEROL INCREASED
     Route: 048
  8. FLEXERIL [Concomitant]
     Indication: MUSCLE TIGHTNESS
     Route: 048
  9. PEGASYS [Concomitant]
     Indication: HEPATITIS C
     Route: 058
     Dates: start: 20120223
  10. HYDROCORTISONE [Concomitant]
     Indication: ARTHRITIS
     Route: 048
  11. CITALOPRAM HYDROBROMIDE (ESCITALOPRAM) [Concomitant]
     Indication: DEPRESSION
     Route: 048
  12. INCIVEK [Suspect]
     Indication: HEPATITIS C
     Route: 048
     Dates: start: 20120223

REACTIONS (1)
  - HEADACHE [None]
